FAERS Safety Report 7013978-7 (Version None)
Quarter: 2010Q3

REPORT INFORMATION
  Report Type: 
  Country: None (occurrence: None)
  Receive Date: 20100926
  Receipt Date: 20100915
  Transmission Date: 20110219
  Serious: Yes (Other)
  Sender: FDA-Public Use
  Company Number: PHHY2010CA61609

PATIENT
  Sex: Female

DRUGS (3)
  1. ACLASTA [Suspect]
     Indication: OSTEOPOROSIS
     Dosage: UNK
     Dates: start: 20091109
  2. SYNTHROID [Concomitant]
     Dosage: 0.05
  3. SOLUCAL [Concomitant]
     Dosage: 30 CC BID

REACTIONS (4)
  - ARTHRALGIA [None]
  - DERMATITIS [None]
  - ERYTHEMA [None]
  - EXOSTOSIS [None]
